FAERS Safety Report 7725920-1 (Version None)
Quarter: 2011Q3

REPORT INFORMATION
  Report Type: 
  Country: None (occurrence: None)
  Receive Date: 20110902
  Receipt Date: 20110823
  Transmission Date: 20111222
  Serious: Yes (Hospitalization)
  Sender: FDA-Public Use
  Company Number: KR-PURDUE-MAG-2011-0001603

PATIENT
  Sex: Female

DRUGS (3)
  1. OXYCODONE HCL [Suspect]
     Indication: ANALGESIC THERAPY
     Dosage: 10 MG, DAILY
     Route: 048
     Dates: start: 20100628, end: 20110330
  2. LYRICA [Concomitant]
     Indication: ANALGESIC THERAPY
     Dosage: 300 MG, DAILY
     Route: 048
     Dates: start: 20100901
  3. OXYCODONE HCL [Suspect]
     Dosage: 20 MG, DAILY
     Route: 048
     Dates: start: 20110425

REACTIONS (1)
  - DIABETES MELLITUS [None]
